FAERS Safety Report 6262536-0 (Version None)
Quarter: 2009Q3

REPORT INFORMATION
  Report Type: 
  Country: None (occurrence: None)
  Receive Date: 20090709
  Receipt Date: 20090703
  Transmission Date: 20100115
  Serious: Yes (Hospitalization)
  Sender: FDA-Public Use
  Company Number: FR-ABBOTT-09P-056-0581926-00

PATIENT
  Sex: Female

DRUGS (4)
  1. LIPANTHYL TABLETS [Suspect]
     Indication: DRUG USE FOR UNKNOWN INDICATION
     Route: 048
     Dates: start: 20090301, end: 20090527
  2. SELOKEN [Suspect]
     Indication: HYPERTENSION
     Route: 048
     Dates: start: 19990101, end: 20090527
  3. PLAVIX [Suspect]
     Indication: CEREBROVASCULAR ACCIDENT PROPHYLAXIS
     Route: 048
     Dates: start: 20060101, end: 20090527
  4. COAPROVEL 300/12.5 [Suspect]
     Indication: HYPERTENSION
     Route: 048
     Dates: start: 20080101, end: 20090527

REACTIONS (2)
  - PANCREATITIS ACUTE [None]
  - TRANSAMINASES INCREASED [None]
